FAERS Safety Report 9393046 (Version 5)
Quarter: 2013Q4

REPORT INFORMATION
  Report Type: Spontaneous
  Country: US (occurrence: US)
  Receive Date: 20130710
  Receipt Date: 20131107
  Transmission Date: 20140711
  Serious: Yes (Other)
  Sender: FDA-Public Use
  Company Number: US-PFIZER INC-2013201712

PATIENT
  Age: 60 Year
  Sex: Female
  Weight: 70.3 kg

DRUGS (5)
  1. LYRICA [Suspect]
     Indication: FIBROMYALGIA
     Dosage: 150 MG, 3X/DAY
     Route: 048
     Dates: start: 20130620, end: 20130716
  2. LYRICA [Suspect]
     Dosage: 1 DF, DAILY
  3. LISINOPRIL [Concomitant]
     Indication: HYPERTENSION
     Dosage: 10 MG, UNK
  4. CYMBALTA [Concomitant]
     Dosage: 60 MG, 1X/DAY
  5. SOMA [Concomitant]
     Dosage: UNK, 3X/DAY

REACTIONS (7)
  - Intervertebral disc protrusion [Unknown]
  - Drug withdrawal syndrome [Unknown]
  - Cold sweat [Unknown]
  - Middle insomnia [Unknown]
  - Pain [Unknown]
  - Hyperhidrosis [Unknown]
  - Malaise [Unknown]
